FAERS Safety Report 4461949-7 (Version None)
Quarter: 2004Q3

REPORT INFORMATION
  Report Type: 
  Country: None (occurrence: None)
  Receive Date: 20040929
  Receipt Date: 20031126
  Transmission Date: 20050211
  Serious: No
  Sender: FDA-Public Use
  Company Number: US-GLAXOSMITHKLINE-A0441179A

PATIENT
  Age: 63 Year
  Sex: Male

DRUGS (2)
  1. SEREVENT [Suspect]
     Indication: BRONCHOSPASM
     Dosage: 50MCG AS REQUIRED
     Route: 055
     Dates: start: 20031026, end: 20031122
  2. LEVOXYL [Concomitant]

REACTIONS (1)
  - DRUG INEFFECTIVE [None]
